FAERS Safety Report 4915262-1 (Version None)
Quarter: 2006Q1

REPORT INFORMATION
  Report Type: 
  Country: None (occurrence: None)
  Receive Date: 20060216
  Receipt Date: 20060216
  Transmission Date: 20060701
  Serious: Yes (Hospitalization)
  Sender: FDA-Public Use
  Company Number: None

PATIENT
  Sex: Female
  Weight: 51.2565 kg

DRUGS (12)
  1. COUMADIN [Suspect]
     Indication: ATRIAL FIBRILLATION
     Dosage: 2.5 MG PO QD    PRIOR TO ADMISSION
     Route: 048
  2. ACTONEL [Concomitant]
  3. PREVACID [Concomitant]
  4. COLACE [Concomitant]
  5. SENOKOT [Concomitant]
  6. VIT D [Concomitant]
  7. CALCIUM GLUCONATE [Concomitant]
  8. M.V.I. [Concomitant]
  9. ATENOLOL [Concomitant]
  10. ALBUTEROL [Concomitant]
  11. PULMICORT [Concomitant]
  12. ZOLOFT [Concomitant]

REACTIONS (3)
  - COAGULOPATHY [None]
  - HAEMATOCHEZIA [None]
  - HAEMATURIA [None]
